FAERS Safety Report 8063577 (Version 6)
Quarter: 2014Q3

REPORT INFORMATION
  Report Type: Spontaneous
  Country: US (occurrence: CA)
  Receive Date: 20110801
  Receipt Date: 20140703
  Transmission Date: 20150326
  Serious: Yes (Hospitalization, Other)
  Sender: FDA-Public Use
  Company Number: US-ROCHE-GNE322141

PATIENT
  Sex: Female

DRUGS (8)
  1. XOLAIR [Suspect]
     Active Substance: OMALIZUMAB
     Route: 058
     Dates: start: 20130819, end: 20130819
  2. ADVAIR HFA [Concomitant]
     Active Substance: FLUTICASONE PROPIONATE\SALMETEROL XINAFOATE
     Indication: PRODUCT USED FOR UNKNOWN INDICATION
  3. SYMBICORT [Concomitant]
     Active Substance: BUDESONIDE\FORMOTEROL FUMARATE DIHYDRATE
     Indication: PRODUCT USED FOR UNKNOWN INDICATION
  4. NASONEX [Concomitant]
     Active Substance: MOMETASONE FUROATE
     Indication: PRODUCT USED FOR UNKNOWN INDICATION
  5. PREDNISONE. [Concomitant]
     Active Substance: PREDNISONE
     Route: 065
     Dates: start: 201301, end: 201305
  6. SINGULAIR [Concomitant]
     Active Substance: MONTELUKAST SODIUM
     Indication: PRODUCT USED FOR UNKNOWN INDICATION
  7. PREDNISONE. [Concomitant]
     Active Substance: PREDNISONE
     Route: 065
     Dates: end: 201305
  8. XOLAIR [Suspect]
     Active Substance: OMALIZUMAB
     Indication: ASTHMA
     Route: 058
     Dates: start: 20101015

REACTIONS (19)
  - Asthenia [Unknown]
  - Anaemia [Unknown]
  - Sinus disorder [Unknown]
  - Embolism [Unknown]
  - Dyspnoea [Unknown]
  - Uterine polyp [Unknown]
  - General physical health deterioration [Unknown]
  - Sinusitis [Unknown]
  - Uterine leiomyoma [Unknown]
  - Drug ineffective [Unknown]
  - Abdominal pain [Unknown]
  - Angina pectoris [Unknown]
  - Lung disorder [Not Recovered/Not Resolved]
  - Respiratory tract infection [Unknown]
  - Cardiac disorder [Unknown]
  - Headache [Unknown]
  - Uterine haemorrhage [Unknown]
  - Heart sounds abnormal [Recovered/Resolved]
  - Fatigue [Unknown]
